FAERS Safety Report 7579663-8 (Version None)
Quarter: 2011Q2

REPORT INFORMATION
  Report Type: 
  Country: None (occurrence: None)
  Receive Date: 20110629
  Receipt Date: 20110607
  Transmission Date: 20111010
  Serious: Yes (Other)
  Sender: FDA-Public Use
  Company Number: US-BAYER-2011-025339

PATIENT
  Age: 25 Year
  Sex: Female
  Weight: 76.19 kg

DRUGS (9)
  1. EXCEDRIN (MIGRAINE) [Concomitant]
     Dosage: UNK UNK, PRN
  2. YASMIN [Suspect]
     Indication: CONTRACEPTION
     Dosage: UNK
     Dates: start: 20040101, end: 20100101
  3. YAZ [Suspect]
     Indication: CONTRACEPTION
     Dosage: UNK
     Dates: start: 20040101, end: 20100101
  4. DROSPIRENONE AND ETHINYL ESTRADIOL [Suspect]
     Indication: CONTRACEPTION
     Dosage: UNK
     Route: 048
     Dates: start: 20040101, end: 20100101
  5. XANAX [Concomitant]
  6. GADOBUTROL [Concomitant]
     Dosage: UNK UNK, PRN
  7. PHENTERMINE [Concomitant]
     Indication: MEDICAL DIET
     Dosage: UNK
     Dates: start: 20091130
  8. RYTHMOL [Concomitant]
     Dosage: UNK UNK, PRN
  9. PROTONIX [Concomitant]
     Dosage: UNK UNK, PRN

REACTIONS (3)
  - GALLBLADDER INJURY [None]
  - CHOLELITHIASIS [None]
  - CHOLECYSTITIS CHRONIC [None]
